FAERS Safety Report 9474253 (Version 1)
Quarter: 2013Q3

REPORT INFORMATION
  Report Type: Spontaneous
  Country: CN (occurrence: CN)
  Receive Date: 20130823
  Receipt Date: 20130823
  Transmission Date: 20140515
  Serious: Yes (Hospitalization)
  Sender: FDA-Public Use
  Company Number: CN-BRISTOL-MYERS SQUIBB COMPANY-19199629

PATIENT
  Age: 76 Year
  Sex: Male

DRUGS (2)
  1. METFORMIN HCL TABS [Suspect]
     Indication: DIABETES MELLITUS
     Route: 048
     Dates: start: 20120901, end: 20121212
  2. GLICLAZIDE [Suspect]
     Indication: DIABETES MELLITUS
     Dosage: TABS
     Route: 048
     Dates: start: 20120901, end: 20121212

REACTIONS (1)
  - Hypoglycaemic coma [Recovered/Resolved]
